FAERS Safety Report 5549109-X (Version None)
Quarter: 2007Q4

REPORT INFORMATION
  Report Type: 
  Country: None (occurrence: None)
  Receive Date: 20071210
  Receipt Date: 20071127
  Transmission Date: 20080405
  Serious: Yes (Death)
  Sender: FDA-Public Use
  Company Number: S07-USA-06105-01

PATIENT
  Sex: Female

DRUGS (3)
  1. LEXAPRO [Suspect]
     Dosage: 45 TABLETS ONCE PO
     Route: 048
     Dates: start: 20071127, end: 20071127
  2. LEXAPRO [Suspect]
     Dates: end: 20071126
  3. SEROQUEL [Concomitant]

REACTIONS (1)
  - OVERDOSE [None]
